FAERS Safety Report 7046730-7 (Version None)
Quarter: 2010Q4

REPORT INFORMATION
  Report Type: 
  Country: None (occurrence: None)
  Receive Date: 20101015
  Receipt Date: 20101007
  Transmission Date: 20110411
  Serious: Yes (Hospitalization)
  Sender: FDA-Public Use
  Company Number: SE-JNJFOC-20101002107

PATIENT
  Sex: Female

DRUGS (12)
  1. HALDOL [Suspect]
     Indication: MENTAL RETARDATION
     Route: 048
  2. ANAFRANIL [Suspect]
     Indication: MENTAL RETARDATION
     Route: 048
  3. ANAFRANIL [Suspect]
     Route: 048
  4. HERMOLEPSIN [Suspect]
     Indication: MENTAL RETARDATION
     Route: 048
  5. FELODIPINE [Concomitant]
     Route: 065
  6. ENALAPRIL MALEATE [Concomitant]
     Route: 065
  7. OSTEOTRIOL [Concomitant]
     Route: 065
  8. PROPAVAN [Concomitant]
     Route: 065
  9. DIAZEPAM [Concomitant]
     Route: 065
  10. LEVOTHYROXINE SODIUM [Concomitant]
     Route: 065
  11. IMOVANE [Concomitant]
     Route: 065
  12. CANODERM [Concomitant]
     Route: 065

REACTIONS (1)
  - SEROTONIN SYNDROME [None]
